FAERS Safety Report 7629885-2 (Version None)
Quarter: 2011Q3

REPORT INFORMATION
  Report Type: 
  Country: None (occurrence: None)
  Receive Date: 20110722
  Receipt Date: 20110712
  Transmission Date: 20111222
  Serious: Yes (Life-Threatening, Hospitalization, Other)
  Sender: FDA-Public Use
  Company Number: DE-JNJFOC-20110705614

PATIENT
  Sex: Male

DRUGS (1)
  1. XARELTO [Suspect]
     Indication: KNEE ARTHROPLASTY
     Dosage: RECEIVED FOR APPROXIMATELY 8 WEEKS
     Route: 048

REACTIONS (1)
  - ACUTE HEPATIC FAILURE [None]
